FAERS Safety Report 24401525 (Version 1)
Quarter: 2024Q4

REPORT INFORMATION
  Report Type: Report from Study
  Country: US (occurrence: US)
  Receive Date: 20241007
  Receipt Date: 20241007
  Transmission Date: 20250114
  Serious: No
  Sender: DR REDDYS
  Company Number: US-DRL-USA-CLI/USA/24/0013882

PATIENT
  Age: 7 Year
  Sex: Male
  Weight: 23.9 kg

DRUGS (2)
  1. JAVYGTOR [Suspect]
     Active Substance: SAPROPTERIN DIHYDROCHLORIDE
     Indication: Phenylketonuria
     Dosage: ONCE DAILY WITH FOOD
     Route: 048
  2. periflex junior [Concomitant]
     Indication: Product used for unknown indication
     Dosage: 25 G-374
     Route: 065

REACTIONS (1)
  - Wrist fracture [Unknown]

NARRATIVE: CASE EVENT DATE: 20240915
